FAERS Safety Report 17032705 (Version 1)
Quarter: 2019Q4

REPORT INFORMATION
  Report Type: Report from Study
  Country: GB (occurrence: GB)
  Receive Date: 20191114
  Receipt Date: 20191114
  Transmission Date: 20200122
  Serious: Yes (Other)
  Sender: FDA-Public Use
  Company Number: GB-SAMSUNG BIOEPIS-SB-2019-26776

PATIENT
  Sex: Female

DRUGS (1)
  1. IMRALDI [Suspect]
     Active Substance: ADALIMUMAB
     Indication: PSORIATIC ARTHROPATHY
     Route: 058
     Dates: end: 20191010

REACTIONS (5)
  - Psoriasis [Unknown]
  - Dyspnoea [Unknown]
  - Myalgia [Unknown]
  - Ill-defined disorder [Unknown]
  - Pain [Recovered/Resolved]
